FAERS Safety Report 25426647 (Version 1)
Quarter: 2025Q2

REPORT INFORMATION
  Report Type: Spontaneous
  Country: US (occurrence: US)
  Receive Date: 20250612
  Receipt Date: 20250612
  Transmission Date: 20250716
  Serious: Yes (Other)
  Sender: ROCHE
  Company Number: US-BoehringerIngelheim-2025-BI-074396

PATIENT
  Age: 78 Year
  Sex: Male

DRUGS (2)
  1. TENECTEPLASE [Suspect]
     Active Substance: TENECTEPLASE
     Indication: Aphasia
     Route: 042
  2. LEUPROLIDE [Concomitant]
     Active Substance: LEUPROLIDE
     Indication: Prostate cancer

REACTIONS (4)
  - Subarachnoid haemorrhage [Unknown]
  - Cerebral haemorrhage [Unknown]
  - Hemianopia homonymous [Unknown]
  - Off label use [Unknown]

NARRATIVE: CASE EVENT DATE: 20240601
